FAERS Safety Report 7903041-2 (Version None)
Quarter: 2011Q4

REPORT INFORMATION
  Report Type: 
  Country: None (occurrence: None)
  Receive Date: 20111109
  Receipt Date: 20111104
  Transmission Date: 20120403
  Serious: Yes (Other)
  Sender: FDA-Public Use
  Company Number: GR-AMGEN-GRCSP2011055296

PATIENT
  Age: 48 Year
  Sex: Female

DRUGS (4)
  1. VECTIBIX [Suspect]
     Indication: COLON CANCER
     Dosage: 300 MG, ONE TIME DOSE
     Route: 042
     Dates: start: 20111011, end: 20111011
  2. OXALIPLATIN [Concomitant]
     Indication: COLON CANCER
     Dosage: UNK
     Route: 042
     Dates: start: 20111011
  3. AVASTIN [Concomitant]
     Indication: COLON CANCER
     Dosage: UNK
     Dates: start: 20111026
  4. XELODA [Concomitant]
     Indication: COLON CANCER
     Dosage: UNK
     Dates: start: 20111011

REACTIONS (3)
  - RESPIRATORY DISTRESS [None]
  - RASH [None]
  - SKIN SWELLING [None]
